FAERS Safety Report 8420339-2 (Version None)
Quarter: 2012Q2

REPORT INFORMATION
  Report Type: 
  Country: None (occurrence: None)
  Receive Date: 20120607
  Receipt Date: 20120604
  Transmission Date: 20120825
  Serious: Yes (Other)
  Sender: FDA-Public Use
  Company Number: US-AMGEN-USASP2012035014

PATIENT
  Age: 79 Year
  Sex: Male

DRUGS (2)
  1. EPOGEN [Suspect]
     Indication: RENAL FAILURE CHRONIC
     Dosage: UNK
     Dates: start: 20091022
  2. EPOGEN [Suspect]
     Dosage: 19800 IU, 3 TIMES/WK
     Dates: start: 20110519

REACTIONS (3)
  - MYELODYSPLASTIC SYNDROME [None]
  - THERAPEUTIC RESPONSE DECREASED [None]
  - BLOOD PRODUCT TRANSFUSION DEPENDENT [None]
